FAERS Safety Report 20366031 (Version 1)
Quarter: 2022Q1

REPORT INFORMATION
  Report Type: Spontaneous
  Country: DE (occurrence: DE)
  Receive Date: 20220123
  Receipt Date: 20220123
  Transmission Date: 20220423
  Serious: No
  Sender: FDA-Public Use
  Company Number: DE-UCBSA-2022001738

PATIENT

DRUGS (1)
  1. LEGANTO [Suspect]
     Active Substance: ROTIGOTINE
     Indication: Product used for unknown indication

REACTIONS (1)
  - Device adhesion issue [Unknown]
